FAERS Safety Report 23999641 (Version 1)
Quarter: 2024Q2

REPORT INFORMATION
  Report Type: Spontaneous
  Country: FR (occurrence: FR)
  Receive Date: 20240621
  Receipt Date: 20240621
  Transmission Date: 20240716
  Serious: Yes (Other)
  Sender: FDA-Public Use
  Company Number: FR-SUN PHARMACEUTICAL INDUSTRIES LTD-2024RR-453052

PATIENT
  Age: 56 Year
  Sex: Female

DRUGS (2)
  1. PREGABALIN [Suspect]
     Active Substance: PREGABALIN
     Indication: Product used for unknown indication
     Dosage: 300 MG MORNING AND EVENING
     Route: 048
     Dates: start: 2011
  2. MORPHINE [Suspect]
     Active Substance: MORPHINE
     Indication: Product used for unknown indication
     Dosage: 30 MG LP IN THE MORNING, 40 MG LP IN THE EVENING 20MG LI 2 X/DAY
     Route: 048
     Dates: start: 1996

REACTIONS (1)
  - Drug use disorder [Not Recovered/Not Resolved]
